FAERS Safety Report 5925340-6 (Version None)
Quarter: 2008Q4

REPORT INFORMATION
  Report Type: 
  Country: None (occurrence: None)
  Receive Date: 20081020
  Receipt Date: 20081020
  Transmission Date: 20090506
  Serious: Yes (Other)
  Sender: FDA-Public Use
  Company Number: None

PATIENT
  Age: 63 Year
  Sex: Male
  Weight: 68.0396 kg

DRUGS (1)
  1. ZETIA [Suspect]
     Dosage: 10MG  DAILY PO
     Route: 048
     Dates: start: 20050101, end: 20080115

REACTIONS (5)
  - ARTHRITIS [None]
  - CHEST PAIN [None]
  - MUSCULOSKELETAL DISORDER [None]
  - NO THERAPEUTIC RESPONSE [None]
  - SLEEP DISORDER [None]
